FAERS Safety Report 25300310 (Version 2)
Quarter: 2025Q3

REPORT INFORMATION
  Report Type: Spontaneous
  Country: US (occurrence: US)
  Receive Date: 20250512
  Receipt Date: 20250716
  Transmission Date: 20251020
  Serious: No
  Sender: ROCHE
  Company Number: US-ROCHE-10000275721

PATIENT
  Age: 15 Year
  Sex: Male

DRUGS (34)
  1. MYCOPHENOLATE MOFETIL [Suspect]
     Active Substance: MYCOPHENOLATE MOFETIL
     Indication: Epidermolysis bullosa
     Route: 048
  2. MYCOPHENOLATE MOFETIL [Suspect]
     Active Substance: MYCOPHENOLATE MOFETIL
     Indication: Prurigo
  3. OMALIZUMAB [Suspect]
     Active Substance: OMALIZUMAB
     Indication: Epidermolysis bullosa
     Route: 065
  4. OMALIZUMAB [Suspect]
     Active Substance: OMALIZUMAB
     Indication: Prurigo
  5. CYCLOSPORINE [Concomitant]
     Active Substance: CYCLOSPORINE
     Indication: Epidermolysis bullosa
  6. CYCLOSPORINE [Concomitant]
     Active Substance: CYCLOSPORINE
     Indication: Prurigo
  7. GABAPENTIN [Concomitant]
     Active Substance: GABAPENTIN
     Indication: Epidermolysis bullosa
  8. GABAPENTIN [Concomitant]
     Active Substance: GABAPENTIN
     Indication: Prurigo
  9. DOXEPIN [Concomitant]
     Active Substance: DOXEPIN
     Indication: Epidermolysis bullosa
  10. DOXEPIN [Concomitant]
     Active Substance: DOXEPIN
     Indication: Prurigo
  11. MUPIROCIN [Concomitant]
     Active Substance: MUPIROCIN
     Indication: Epidermolysis bullosa
  12. MUPIROCIN [Concomitant]
     Active Substance: MUPIROCIN
     Indication: Prurigo
  13. CANNABIS SATIVA SUBSP. INDICA TOP [Concomitant]
     Active Substance: CANNABIS SATIVA SUBSP. INDICA TOP
     Indication: Epidermolysis bullosa
  14. CANNABIS SATIVA SUBSP. INDICA TOP [Concomitant]
     Active Substance: CANNABIS SATIVA SUBSP. INDICA TOP
     Indication: Prurigo
  15. THALIDOMIDE [Concomitant]
     Active Substance: THALIDOMIDE
     Indication: Epidermolysis bullosa
  16. THALIDOMIDE [Concomitant]
     Active Substance: THALIDOMIDE
     Indication: Prurigo
  17. LENALIDOMIDE [Concomitant]
     Active Substance: LENALIDOMIDE
     Indication: Epidermolysis bullosa
  18. LENALIDOMIDE [Concomitant]
     Active Substance: LENALIDOMIDE
     Indication: Prurigo
  19. TOFACITINIB [Concomitant]
     Active Substance: TOFACITINIB
     Indication: Epidermolysis bullosa
  20. TOFACITINIB [Concomitant]
     Active Substance: TOFACITINIB
     Indication: Prurigo
  21. ACETYLCYSTEINE [Concomitant]
     Active Substance: ACETYLCYSTEINE
     Indication: Epidermolysis bullosa
  22. ACETYLCYSTEINE [Concomitant]
     Active Substance: ACETYLCYSTEINE
     Indication: Prurigo
  23. AMITRIPTYLINE\KETAMINE [Concomitant]
     Active Substance: AMITRIPTYLINE\KETAMINE
     Indication: Epidermolysis bullosa
     Route: 061
  24. AMITRIPTYLINE\KETAMINE [Concomitant]
     Active Substance: AMITRIPTYLINE\KETAMINE
     Indication: Prurigo
  25. PREGABALIN [Concomitant]
     Active Substance: PREGABALIN
     Indication: Epidermolysis bullosa
  26. PREGABALIN [Concomitant]
     Active Substance: PREGABALIN
     Indication: Prurigo
  27. NALTREXONE [Concomitant]
     Active Substance: NALTREXONE
     Indication: Epidermolysis bullosa
  28. NALTREXONE [Concomitant]
     Active Substance: NALTREXONE
     Indication: Prurigo
  29. MELATONIN [Concomitant]
     Active Substance: MELATONIN
     Indication: Epidermolysis bullosa
  30. MELATONIN [Concomitant]
     Active Substance: MELATONIN
     Indication: Prurigo
  31. MARINOL [Concomitant]
     Active Substance: DRONABINOL
     Indication: Epidermolysis bullosa
  32. MARINOL [Concomitant]
     Active Substance: DRONABINOL
     Indication: Prurigo
  33. CLONIDINE [Concomitant]
     Active Substance: CLONIDINE
     Indication: Epidermolysis bullosa
  34. CLONIDINE [Concomitant]
     Active Substance: CLONIDINE
     Indication: Prurigo

REACTIONS (2)
  - Off label use [Unknown]
  - No adverse event [Unknown]
